FAERS Safety Report 17249866 (Version 1)
Quarter: 2020Q1

REPORT INFORMATION
  Report Type: Spontaneous
  Country: DE (occurrence: DE)
  Receive Date: 20200109
  Receipt Date: 20200109
  Transmission Date: 20200409
  Serious: Yes (Congenital Anomaly, Other)
  Sender: FDA-Public Use
  Company Number: DE-DRREDDYS-GER/GER/20/0118037

PATIENT
  Sex: Male

DRUGS (1)
  1. ONDANSETRON [Suspect]
     Active Substance: ONDANSETRON
     Indication: PRODUCT USED FOR UNKNOWN INDICATION
     Dosage: 2 - 3 X TGL (2 - 3 X DAILY)
     Dates: start: 20190805, end: 20190823

REACTIONS (2)
  - Cleft lip [Recovered/Resolved with Sequelae]
  - Foetal exposure during pregnancy [Unknown]
